FAERS Safety Report 18781917 (Version 1)
Quarter: 2021Q1

REPORT INFORMATION
  Report Type: Spontaneous
  Country: US (occurrence: US)
  Receive Date: 20210125
  Receipt Date: 20210125
  Transmission Date: 20210419
  Serious: Yes (Hospitalization)
  Sender: FDA-Public Use
  Company Number: None

PATIENT
  Age: 67 Year
  Sex: Female
  Weight: 84.1 kg

DRUGS (6)
  1. BAMLANIVIMAB. [Suspect]
     Active Substance: BAMLANIVIMAB
     Indication: COVID-19
     Dosage: ?          OTHER FREQUENCY:ONCE;?
     Route: 042
     Dates: start: 20200105, end: 20200105
  2. ONDANSETRON 4MG IV [Concomitant]
     Active Substance: ONDANSETRON
     Dates: start: 20210105, end: 20210105
  3. BAMLANIVIMAB 700MG IV [Concomitant]
     Active Substance: BAMLANIVIMAB
     Dates: start: 20210105, end: 20210105
  4. SODIUM CHLORIDE 0.9% 500ML BOLUS [Concomitant]
     Dates: start: 20210105, end: 20210105
  5. LORAZEPAM 2MG IV [Concomitant]
     Dates: start: 20210105, end: 20210105
  6. ISOVUE 370 75ML [Concomitant]
     Dates: start: 20210105, end: 20210105

REACTIONS (10)
  - Aspartate aminotransferase increased [None]
  - Urinary incontinence [None]
  - Tachypnoea [None]
  - Crepitations [None]
  - Confusional state [None]
  - Asthenia [None]
  - Pyrexia [None]
  - Anxiety [None]
  - Cardiomegaly [None]
  - Delirium [None]

NARRATIVE: CASE EVENT DATE: 20210106
